FAERS Safety Report 7247228-3 (Version None)
Quarter: 2011Q1

REPORT INFORMATION
  Report Type: 
  Country: None (occurrence: None)
  Receive Date: 20110127
  Receipt Date: 20101006
  Transmission Date: 20110831
  Serious: Yes (Death, Disabling, Other)
  Sender: FDA-Public Use
  Company Number: FR-CELGENEUS-056-50794-10011548

PATIENT
  Sex: Male
  Weight: 60 kg

DRUGS (1)
  1. VIDAZA [Suspect]
     Route: 050
     Dates: start: 20090202, end: 20091122

REACTIONS (1)
  - INTERSTITIAL LUNG DISEASE [None]
